FAERS Safety Report 9254565 (Version 4)
Quarter: 2013Q2

REPORT INFORMATION
  Report Type: Spontaneous
  Country: GB (occurrence: None)
  Receive Date: 20130422
  Receipt Date: 20130513
  Transmission Date: 20140414
  Serious: Yes (Hospitalization, Other)
  Sender: FDA-Public Use
  Company Number: AUR-APL-2013-03140

PATIENT
  Age: 28 Year
  Sex: Female

DRUGS (5)
  1. ONDANSETRON [Suspect]
     Indication: PRODUCT USED FOR UNKNOWN INDICATION
     Dosage: STOPPED
  2. VALOID [Suspect]
     Indication: MALAISE
     Route: 042
  3. BACLOFEN [Suspect]
     Indication: PRODUCT USED FOR UNKNOWN INDICATION
     Dosage: STOPPED?
  4. DICLOFENAC SODIUM [Suspect]
     Indication: PRODUCT USED FOR UNKNOWN INDICATION
  5. ENOXAPARIN [Suspect]
     Indication: PRODUCT USED FOR UNKNOWN INDICATION
     Dosage: STOPPED?

REACTIONS (19)
  - Blood pressure decreased [None]
  - Anxiety [None]
  - Wrong technique in drug usage process [None]
  - Panic attack [None]
  - Dyspepsia [None]
  - Injection site pain [None]
  - Angina pectoris [None]
  - Tremor [None]
  - Gastric disorder [None]
  - Pain [None]
  - Dizziness [None]
  - Mental disorder [None]
  - Respiratory disorder [None]
  - Gait disturbance [None]
  - Insomnia [None]
  - Swelling [None]
  - Somnolence [None]
  - Disturbance in attention [None]
  - Hypophagia [None]
